FAERS Safety Report 8874259 (Version 1)
Quarter: 2012Q4

REPORT INFORMATION
  Report Type: 
  Country: JP (occurrence: JP)
  Receive Date: 20121030
  Receipt Date: 20121030
  Transmission Date: 20130627
  Serious: Yes (Life-Threatening, Hospitalization, Other)
  Sender: FDA-Public Use
  Company Number: JP-PFIZER INC-2012226212

PATIENT
  Age: 67 Year
  Sex: Male

DRUGS (2)
  1. LYRICA [Suspect]
     Indication: MUSCULOSKELETAL PAIN
     Dosage: 75 mg, 2x/day
     Route: 048
     Dates: start: 20120828, end: 20120912
  2. ZYLORIC [Suspect]
     Indication: HYPERURICAEMIA
     Dosage: 100 mg, 1x/day
     Route: 048
     Dates: start: 2010, end: 20120912

REACTIONS (2)
  - Pharyngeal oedema [Recovered/Resolved]
  - Stevens-Johnson syndrome [Recovered/Resolved]
